FAERS Safety Report 4933730-3 (Version None)
Quarter: 2006Q1

REPORT INFORMATION
  Report Type: 
  Country: None (occurrence: None)
  Receive Date: 20060306
  Receipt Date: 20060224
  Transmission Date: 20060701
  Serious: Yes (Other)
  Sender: FDA-Public Use
  Company Number: GB-ABBOTT-06P-167-0326092-00

PATIENT
  Sex: Female

DRUGS (3)
  1. KLARICID I.V. [Suspect]
     Indication: PNEUMONIA
     Route: 042
     Dates: start: 20060221, end: 20060223
  2. PROPRANOLOL [Concomitant]
     Indication: MIGRAINE
  3. CEFUROXIME [Concomitant]
     Indication: PNEUMONIA

REACTIONS (4)
  - ADRENOCORTICAL INSUFFICIENCY CHRONIC [None]
  - HALLUCINATION, VISUAL [None]
  - PRESSURE OF SPEECH [None]
  - PSYCHOTIC DISORDER [None]
